FAERS Safety Report 20775899 (Version 1)
Quarter: 2022Q2

REPORT INFORMATION
  Report Type: Spontaneous
  Country: US (occurrence: US)
  Receive Date: 20220502
  Receipt Date: 20220502
  Transmission Date: 20220721
  Serious: No
  Sender: FDA-Public Use
  Company Number: US-PFIZER INC-202101276010

PATIENT
  Age: 67 Year
  Sex: Female
  Weight: 88.45 kg

DRUGS (1)
  1. DESVENLAFAXINE SUCCINATE [Suspect]
     Active Substance: DESVENLAFAXINE SUCCINATE
     Indication: Depression
     Dosage: 50 MG, DAILY
     Route: 048
     Dates: start: 20210825

REACTIONS (4)
  - Rash [Not Recovered/Not Resolved]
  - Feeling hot [Unknown]
  - Pruritus [Unknown]
  - Pain [Unknown]

NARRATIVE: CASE EVENT DATE: 20210908
